FAERS Safety Report 10486603 (Version 1)
Quarter: 2014Q3

REPORT INFORMATION
  Report Type: Spontaneous
  Country: GB (occurrence: None)
  Receive Date: 20140929
  Receipt Date: 20140929
  Transmission Date: 20150326
  Serious: Yes (Life-Threatening, Hospitalization)
  Sender: FDA-Public Use
  Company Number: GB-AIKEM-000722

PATIENT
  Age: 29 Year
  Sex: Male

DRUGS (3)
  1. OMEPRAZOLE. [Concomitant]
     Active Substance: OMEPRAZOLE
  2. PARACETAMOL [Concomitant]
     Active Substance: ACETAMINOPHEN
  3. QUETIAPINE [Suspect]
     Active Substance: QUETIAPINE
     Indication: SCHIZOPHRENIA
     Route: 048
     Dates: start: 201403, end: 20140827

REACTIONS (8)
  - Torticollis [None]
  - Hyperhidrosis [None]
  - Leukocytosis [None]
  - Liver function test abnormal [None]
  - Neuroleptic malignant syndrome [None]
  - Dystonia [None]
  - Swollen tongue [None]
  - Joint stiffness [None]

NARRATIVE: CASE EVENT DATE: 20140827
